FAERS Safety Report 6021054-5 (Version None)
Quarter: 2008Q4

REPORT INFORMATION
  Report Type: 
  Country: None (occurrence: None)
  Receive Date: 20081229
  Receipt Date: 20081223
  Transmission Date: 20090506
  Serious: Yes (Hospitalization, Other)
  Sender: FDA-Public Use
  Company Number: US-NOVOPROD-280751

PATIENT
  Sex: Male
  Weight: 65 kg

DRUGS (9)
  1. NORDITROPIN NORDIFLEX [Suspect]
     Indication: HAEMODIALYSIS
     Dosage: 1.2 MG, QD
     Route: 058
     Dates: start: 20080926, end: 20081027
  2. ROBITUSSIN                         /00048001/ [Concomitant]
     Indication: COUGH
     Dosage: AS DIRECTED ON BOTTLE, QD
     Route: 048
     Dates: start: 20081018, end: 20081020
  3. EXFORGE                            /01634301/ [Concomitant]
     Indication: HYPERTENSION
     Dosage: 10 MG/ 320 MG, QD
     Route: 048
     Dates: start: 20080101
  4. ZOCOR [Concomitant]
     Indication: HYPERLIPIDAEMIA
     Dosage: 80 MG, QD
     Route: 048
     Dates: start: 20080320
  5. PREDNISONE [Concomitant]
     Indication: RHEUMATOID ARTHRITIS
     Dosage: 5 MG, QD
     Route: 048
     Dates: start: 20080618
  6. PREDNISONE [Concomitant]
     Dosage: 20 MG, QD
     Route: 048
     Dates: start: 20081104
  7. PLAQUENIL                          /00072601/ [Concomitant]
     Indication: RHEUMATOID ARTHRITIS
     Dosage: 200 MG, QD
     Route: 048
     Dates: start: 20080320
  8. CLONIDINE [Concomitant]
     Indication: HYPERTENSION
     Dosage: .4 MG, QD
     Route: 048
     Dates: start: 20080320
  9. LISINOPRIL [Concomitant]
     Indication: HYPERTENSION
     Dosage: 40 MG, QD
     Route: 048
     Dates: start: 20081008

REACTIONS (4)
  - ATRIAL THROMBOSIS [None]
  - CARDIAC FAILURE CONGESTIVE [None]
  - FLUID OVERLOAD [None]
  - PULMONARY OEDEMA [None]
